FAERS Safety Report 4594186-6 (Version None)
Quarter: 2005Q1

REPORT INFORMATION
  Report Type: 
  Country: None (occurrence: None)
  Receive Date: 20050301
  Receipt Date: 20050214
  Transmission Date: 20050727
  Serious: Yes (Life-Threatening, Hospitalization)
  Sender: FDA-Public Use
  Company Number: DE-GLAXOSMITHKLINE-D0045892A

PATIENT
  Age: 28 Year
  Sex: Female
  Weight: 61 kg

DRUGS (7)
  1. RELENZA [Suspect]
     Indication: INFLUENZA
     Dosage: 10MG TWICE PER DAY
     Route: 055
     Dates: start: 20050208, end: 20050212
  2. EUTHYROX [Concomitant]
     Dosage: 25UG PER DAY
     Route: 048
     Dates: start: 20001201
  3. INSIDON [Concomitant]
     Indication: ANXIETY DISORDER
     Dosage: 50MG TWICE PER DAY
     Route: 048
     Dates: start: 20030901
  4. SORTIS [Concomitant]
     Indication: HYPERLIPIDAEMIA
     Dosage: 10MG PER DAY
     Route: 048
     Dates: start: 20010101
  5. BELARA [Concomitant]
     Indication: ORAL CONTRACEPTION
     Dosage: 1TAB PER DAY
     Route: 048
     Dates: start: 19950101
  6. CYANOCOBALAMIN + FOLIC ACID + IRON SALT [Concomitant]
     Dosage: 1CAP PER DAY
     Route: 048
  7. BERODUAL DOSIER-AEROSOL [Concomitant]
     Indication: ASTHMA
     Route: 055

REACTIONS (12)
  - ANAPHYLACTIC SHOCK [None]
  - ATRIAL FIBRILLATION [None]
  - ATRIOVENTRICULAR BLOCK SECOND DEGREE [None]
  - DYSPNOEA [None]
  - FEELING HOT [None]
  - FLUSHING [None]
  - FORMICATION [None]
  - HEADACHE [None]
  - SHOCK [None]
  - SWOLLEN TONGUE [None]
  - TACHYCARDIA [None]
  - URTICARIA [None]
